FAERS Safety Report 17352334 (Version 1)
Quarter: 2020Q1

REPORT INFORMATION
  Report Type: Report from Study
  Country: None (occurrence: RO)
  Receive Date: 20200130
  Receipt Date: 20200130
  Transmission Date: 20200409
  Serious: Yes (Hospitalization)
  Sender: FDA-Public Use
  Company Number: RO-ABBVIE-20K-135-3255935-00

PATIENT
  Age: 59 Year
  Sex: Male

DRUGS (5)
  1. DUODOPA [Suspect]
     Active Substance: CARBIDOPA\LEVODOPA
     Indication: PARKINSON^S DISEASE
     Dosage: DM=7.00?DC=2.90?ED=2.00?NRED=0;?DMN=0.00?DCN=0.00?EDN=0.00?NREDN=0
     Route: 050
     Dates: start: 20160125
  2. ANXIAR [Concomitant]
     Active Substance: LORAZEPAM
     Indication: ORGANIC BRAIN SYNDROME
     Route: 048
  3. LEPONEX [Concomitant]
     Active Substance: CLOZAPINE
     Indication: ORGANIC BRAIN SYNDROME
     Route: 048
  4. SELEGOS [Concomitant]
     Indication: PARKINSON^S DISEASE
     Route: 048
  5. FOKUSIN [Concomitant]
     Active Substance: TAMSULOSIN
     Indication: URETHRAL ADENOMA
     Route: 048

REACTIONS (3)
  - Orthostatic hypotension [Recovering/Resolving]
  - Osteoarthritis [Not Recovered/Not Resolved]
  - Progressive supranuclear palsy [Unknown]

NARRATIVE: CASE EVENT DATE: 20191115
